FAERS Safety Report 4943589-6 (Version None)
Quarter: 2006Q1

REPORT INFORMATION
  Report Type: 
  Country: None (occurrence: None)
  Receive Date: 20060310
  Receipt Date: 20060223
  Transmission Date: 20060701
  Serious: Yes (Life-Threatening, Hospitalization)
  Sender: FDA-Public Use
  Company Number: DEU-2006-0002017

PATIENT
  Age: 51 Year
  Sex: Female
  Weight: 71 kg

DRUGS (3)
  1. OXYGESIC 20 MG (OXYCODONE [Suspect]
     Indication: BACK PAIN
     Dosage: 20 MG, TID, ORAL
     Route: 048
  2. ANTIDEPRESSANTS ( ) CAPSULE [Suspect]
     Indication: DEPRESSION
     Dosage: 60 MG, ORAL
     Route: 048
     Dates: start: 20050901
  3. BERODUAL (IPRATROPIUM BROMIDE, FENOTEROL, HYDROBROMIDE) [Concomitant]

REACTIONS (3)
  - DRUG INTERACTION [None]
  - HEADACHE [None]
  - HYPERTENSIVE CRISIS [None]
